FAERS Safety Report 8368387-5 (Version None)
Quarter: 2012Q2

REPORT INFORMATION
  Report Type: 
  Country: None (occurrence: None)
  Receive Date: 20120517
  Receipt Date: 20120507
  Transmission Date: 20120825
  Serious: Yes (Hospitalization, Other)
  Sender: FDA-Public Use
  Company Number: US-ELI_LILLY_AND_COMPANY-US201109002074

PATIENT
  Sex: Male

DRUGS (18)
  1. ACCUPRIL [Concomitant]
     Indication: BLOOD PRESSURE
  2. LIPITOR [Concomitant]
  3. FORTEO [Suspect]
     Dosage: 20 UG, QD
  4. OXYGEN [Concomitant]
  5. FORTEO [Suspect]
     Indication: OSTEOPOROSIS
     Dosage: 20 UG, QD
  6. VITAMIN D [Concomitant]
  7. FORTEO [Suspect]
     Dosage: 20 UG, QD
     Route: 065
  8. CALCIUM [Concomitant]
  9. ENOXAPARIN [Concomitant]
     Dosage: 100 MG, BID
  10. FORTEO [Suspect]
     Dosage: 20 UG, QD
     Route: 065
  11. FORTEO [Suspect]
     Dosage: 20 UG, QD
     Route: 065
  12. ALLOPURINOL [Concomitant]
     Indication: GOUT
  13. CO Q-10 [Concomitant]
  14. MULTI-VITAMIN [Concomitant]
  15. WARFARIN SODIUM [Concomitant]
     Dosage: 5 MG, UNKNOWN
  16. ASPIRIN [Concomitant]
  17. VESICARE [Concomitant]
  18. ASPIRIN [Concomitant]
     Dosage: 81 MG, QD

REACTIONS (15)
  - PARAESTHESIA [None]
  - PYREXIA [None]
  - PNEUMONIA [None]
  - ABASIA [None]
  - ALTERED STATE OF CONSCIOUSNESS [None]
  - DEEP VEIN THROMBOSIS [None]
  - PAIN IN EXTREMITY [None]
  - FEELING HOT [None]
  - LETHARGY [None]
  - DIARRHOEA [None]
  - BLOOD URINE PRESENT [None]
  - FATIGUE [None]
  - BLADDER CANCER [None]
  - GAIT DISTURBANCE [None]
  - OEDEMA PERIPHERAL [None]
